FAERS Safety Report 12686785 (Version 5)
Quarter: 2020Q3

REPORT INFORMATION
  Report Type: Spontaneous
  Country: US (occurrence: US)
  Receive Date: 20160825
  Receipt Date: 20200702
  Transmission Date: 20201102
  Serious: Yes (Other)
  Sender: FDA-Public Use
  Company Number: US-JAZZ-2016-US-007237

PATIENT
  Age: 20 Year
  Sex: Female

DRUGS (11)
  1. XYREM [Suspect]
     Active Substance: SODIUM OXYBATE
     Dosage: 4.5 G, BID
     Route: 048
     Dates: start: 2013
  2. UROCIT?K [Concomitant]
     Active Substance: POTASSIUM CITRATE
  3. TRANSDERM SCOP [Concomitant]
     Active Substance: SCOPOLAMINE
  4. ASTEPRO [Concomitant]
     Active Substance: AZELASTINE HYDROCHLORIDE
  5. NUVIGIL [Concomitant]
     Active Substance: ARMODAFINIL
  6. XYREM [Suspect]
     Active Substance: SODIUM OXYBATE
     Indication: NARCOLEPSY
     Dosage: 2.25 G, BID
     Route: 048
     Dates: start: 201306, end: 201307
  7. XYREM [Suspect]
     Active Substance: SODIUM OXYBATE
     Indication: CATAPLEXY
     Dosage: DOSE ADJUSTMENTS
     Route: 048
     Dates: start: 2013, end: 2013
  8. NASONEX [Concomitant]
     Active Substance: MOMETASONE FUROATE
  9. IBUPROFEN IB [Concomitant]
     Active Substance: IBUPROFEN
  10. VITAMIN D3 [Suspect]
     Active Substance: CHOLECALCIFEROL
     Indication: PRODUCT USED FOR UNKNOWN INDICATION
  11. ROSADAN [Concomitant]
     Active Substance: METRONIDAZOLE

REACTIONS (2)
  - Nephrolithiasis [Unknown]
  - Essential tremor [Not Recovered/Not Resolved]

NARRATIVE: CASE EVENT DATE: 201510
